FAERS Safety Report 7971684-6 (Version None)
Quarter: 2011Q4

REPORT INFORMATION
  Report Type: 
  Country: None (occurrence: None)
  Receive Date: 20111212
  Receipt Date: 20111202
  Transmission Date: 20120403
  Serious: Yes (Other)
  Sender: FDA-Public Use
  Company Number: US-PURDUE-USA-2011-0075690

PATIENT
  Sex: Female
  Weight: 53.061 kg

DRUGS (9)
  1. DIAZEPAM [Concomitant]
     Dosage: 2.5 MG, UNK
  2. OXYCONTIN [Suspect]
     Indication: COMPRESSION FRACTURE
     Dosage: 10 MG, UNK
     Route: 048
  3. OXYCONTIN [Suspect]
     Indication: BACK PAIN
  4. SYNTHROID [Concomitant]
     Dosage: 100 UNK, UNK
  5. CITRACAL [Concomitant]
     Dosage: 500 UNK, UNK
  6. VITAMIN D [Concomitant]
     Dosage: 1000 IU, UNK
  7. AMBIEN [Concomitant]
     Dosage: 5 MG, UNK
  8. METOPROLOL TARTRATE [Concomitant]
     Dosage: 25 MG, UNK
  9. BISCODYL [Concomitant]
     Dosage: 10 MG, UNK

REACTIONS (4)
  - DRUG WITHDRAWAL SYNDROME [None]
  - INADEQUATE ANALGESIA [None]
  - PAIN [None]
  - MITRAL VALVE REPAIR [None]
